FAERS Safety Report 10736886 (Version 1)
Quarter: 2015Q1

REPORT INFORMATION
  Report Type: Spontaneous
  Country: US (occurrence: None)
  Receive Date: 20150123
  Receipt Date: 20150123
  Transmission Date: 20150721
  Serious: Yes (Hospitalization)
  Sender: FDA-Public Use
  Company Number: None

PATIENT
  Age: 75 Year
  Sex: Male
  Weight: 94 kg

DRUGS (19)
  1. VITAMIN B12 [Concomitant]
     Active Substance: CYANOCOBALAMIN
  2. FUROSEMIDE. [Concomitant]
     Active Substance: FUROSEMIDE
  3. SYLLIUM [Concomitant]
  4. RUXOLITINIB [Suspect]
     Active Substance: RUXOLITINIB
     Indication: ACUTE MYELOID LEUKAEMIA
     Route: 048
     Dates: start: 20141028, end: 20141221
  5. HYDROCODONE BITARTRATE AND ACETAMINOPHEN [Concomitant]
     Active Substance: ACETAMINOPHEN\HYDROCODONE BITARTRATE
  6. ALBUTEROL. [Concomitant]
     Active Substance: ALBUTEROL
  7. SIMVASTATIN. [Concomitant]
     Active Substance: SIMVASTATIN
  8. CEFEPIME [Concomitant]
     Active Substance: CEFEPIME\CEFEPIME HYDROCHLORIDE
  9. ALLOPURINOL. [Concomitant]
     Active Substance: ALLOPURINOL
  10. MULTIVITAMIN [Concomitant]
     Active Substance: VITAMINS
  11. TOLTERODINE [Concomitant]
     Active Substance: TOLTERODINE
  12. FINASTERIDE. [Concomitant]
     Active Substance: FINASTERIDE
  13. FLUTICASONE [Concomitant]
     Active Substance: FLUTICASONE\FLUTICASONE PROPIONATE
  14. FOLIC ACID. [Concomitant]
     Active Substance: FOLIC ACID
  15. ACETAMINOPHEN. [Concomitant]
     Active Substance: ACETAMINOPHEN
  16. LEVOFLOXACIN. [Concomitant]
     Active Substance: LEVOFLOXACIN
  17. ATENOLOL. [Concomitant]
     Active Substance: ATENOLOL
  18. SERTRALINE [Concomitant]
     Active Substance: SERTRALINE HYDROCHLORIDE
  19. TAMULOSIN [Concomitant]
     Active Substance: TAMSULOSIN

REACTIONS (7)
  - Dyspnoea [None]
  - Pulmonary oedema [None]
  - Cardiac failure congestive [None]
  - Lobar pneumonia [None]
  - Pyrexia [None]
  - Wheezing [None]
  - Hypertension [None]

NARRATIVE: CASE EVENT DATE: 20141217
